FAERS Safety Report 16336856 (Version 2)
Quarter: 2019Q3

REPORT INFORMATION
  Report Type: Spontaneous
  Country: DE (occurrence: DE)
  Receive Date: 20190521
  Receipt Date: 20190816
  Transmission Date: 20191004
  Serious: Yes (Life-Threatening, Hospitalization, Disabling, Other)
  Sender: FDA-Public Use
  Company Number: DE-SA-2019SA134371

PATIENT
  Age: 25 Year
  Sex: Female
  Weight: 48 kg

DRUGS (3)
  1. LEMTRADA [Suspect]
     Active Substance: ALEMTUZUMAB
     Indication: RELAPSING MULTIPLE SCLEROSIS
     Dosage: 12 MG, QD
     Route: 041
     Dates: start: 20170330, end: 20170403
  2. LEMTRADA [Suspect]
     Active Substance: ALEMTUZUMAB
     Indication: MULTIPLE SCLEROSIS
     Dosage: 12 MG, QD
     Route: 041
     Dates: start: 20180507, end: 20180509
  3. ACICLOVIR [Concomitant]
     Active Substance: ACYCLOVIR
     Indication: PROPHYLAXIS
     Dosage: 200 MG, BID
     Route: 048
     Dates: start: 20170330, end: 20170426

REACTIONS (16)
  - Multiple sclerosis relapse [Recovered/Resolved]
  - Mobility decreased [Unknown]
  - White blood cell count abnormal [Unknown]
  - Gait disturbance [Unknown]
  - Temperature intolerance [Recovering/Resolving]
  - Paraesthesia [Unknown]
  - Visual impairment [Recovering/Resolving]
  - Gastrointestinal infection [Recovering/Resolving]
  - Nuclear magnetic resonance imaging abnormal [Unknown]
  - Dysphagia [Unknown]
  - Lymphocyte percentage abnormal [Unknown]
  - Varicella virus test positive [Unknown]
  - Uhthoff^s phenomenon [Unknown]
  - Epilepsy [Unknown]
  - Disturbance in attention [Unknown]
  - Neutrophil percentage abnormal [Unknown]

NARRATIVE: CASE EVENT DATE: 201703
